FAERS Safety Report 16371819 (Version 2)
Quarter: 2019Q2

REPORT INFORMATION
  Report Type: Spontaneous
  Country: US (occurrence: US)
  Receive Date: 20190530
  Receipt Date: 20190614
  Transmission Date: 20190711
  Serious: No
  Sender: FDA-Public Use
  Company Number: US-VERTEX PHARMACEUTICALS-2019-004841

PATIENT
  Age: 11 Year
  Sex: Male
  Weight: 34 kg

DRUGS (3)
  1. ORKAMBI [Suspect]
     Active Substance: IVACAFTOR\LUMACAFTOR
     Indication: CYSTIC FIBROSIS
     Dosage: UNK UNK, BID
     Route: 048
  2. TOBI [Concomitant]
     Active Substance: TOBRAMYCIN
     Dosage: 4 UT, BID
     Route: 055
  3. PULMOZYME [Concomitant]
     Active Substance: DORNASE ALFA
     Dosage: 2.5 MILLILITER, QD
     Route: 055

REACTIONS (1)
  - Lung infection pseudomonal [Unknown]

NARRATIVE: CASE EVENT DATE: 20190319
